FAERS Safety Report 8406917-5 (Version None)
Quarter: 2012Q2

REPORT INFORMATION
  Report Type: 
  Country: None (occurrence: None)
  Receive Date: 20120604
  Receipt Date: 20120530
  Transmission Date: 20120825
  Serious: Yes (Life-Threatening, Hospitalization)
  Sender: FDA-Public Use
  Company Number: CA-ASTRAZENECA-2012SE28337

PATIENT
  Age: 60 Year
  Sex: Female
  Weight: 68 kg

DRUGS (4)
  1. BISOPROLOL FUMARATE [Concomitant]
     Route: 048
     Dates: start: 20120131, end: 20120418
  2. BISOPROLOL FUMARATE [Concomitant]
     Route: 048
     Dates: start: 20120418, end: 20120419
  3. BRILINTA [Suspect]
     Indication: ACUTE CORONARY SYNDROME
     Route: 048
     Dates: start: 20120418, end: 20120425
  4. REOPRO [Concomitant]

REACTIONS (3)
  - EXTRASYSTOLES [None]
  - HAEMORRHAGE [None]
  - SINUS BRADYCARDIA [None]
